APPROVED DRUG PRODUCT: HYDRALAZINE HYDROCHLORIDE
Active Ingredient: HYDRALAZINE HYDROCHLORIDE
Strength: 20MG/ML
Dosage Form/Route: INJECTABLE;INJECTION
Application: A202938 | Product #001 | TE Code: AP
Applicant: NAVINTA LLC
Approved: Mar 28, 2013 | RLD: No | RS: No | Type: RX